FAERS Safety Report 8441514-7 (Version None)
Quarter: 2012Q2

REPORT INFORMATION
  Report Type: 
  Country: None (occurrence: None)
  Receive Date: 20120615
  Receipt Date: 20120604
  Transmission Date: 20120825
  Serious: No
  Sender: FDA-Public Use
  Company Number: US-ASTRAZENECA-2012SE37306

PATIENT
  Age: 50 Year
  Sex: Male
  Weight: 124.7 kg

DRUGS (3)
  1. IBUPROFEN (ADVIL) [Concomitant]
     Indication: PAIN
  2. NEXIUM [Suspect]
     Indication: GASTROOESOPHAGEAL REFLUX DISEASE
     Route: 048
  3. PERCOCET [Concomitant]
     Indication: PAIN

REACTIONS (4)
  - IRRITABLE BOWEL SYNDROME [None]
  - INTENTIONAL DRUG MISUSE [None]
  - DYSPEPSIA [None]
  - GASTROOESOPHAGEAL REFLUX DISEASE [None]
